FAERS Safety Report 8158106-X (Version None)
Quarter: 2012Q1

REPORT INFORMATION
  Report Type: 
  Country: None (occurrence: None)
  Receive Date: 20120222
  Receipt Date: 20120219
  Transmission Date: 20120608
  Serious: Yes (Other)
  Sender: FDA-Public Use
  Company Number: PHHY2012MX014447

PATIENT
  Sex: Male

DRUGS (2)
  1. DIOVAN HCT [Suspect]
     Indication: HYPERTENSION
     Dosage: 1 DF, (160 MG VALSAR/ 12.5 MG HYDROCHLO) PER DAY
     Route: 048
     Dates: start: 20111201
  2. HORMONES NOS [Concomitant]
     Indication: PROSTATE CANCER
     Dates: start: 20110101

REACTIONS (2)
  - METASTASES TO BONE [None]
  - ASTHENIA [None]
